FAERS Safety Report 10674290 (Version 4)
Quarter: 2015Q1

REPORT INFORMATION
  Report Type: Report from Study
  Country: DE (occurrence: DE)
  Receive Date: 20141224
  Receipt Date: 20150120
  Transmission Date: 20150720
  Serious: Yes (Hospitalization)
  Sender: FDA-Public Use
  Company Number: PHHO2014DE011564

PATIENT
  Age: 56 Year
  Sex: Male
  Weight: 77 kg

DRUGS (20)
  1. CALCIUM [Concomitant]
     Active Substance: CALCIUM
     Indication: OSTEOPOROSIS
     Dosage: UNK
     Route: 065
  2. AZITHROMYCIN [Concomitant]
     Active Substance: AZITHROMYCIN ANHYDROUS
     Indication: INFECTION PROPHYLAXIS
     Dosage: UNK
     Route: 065
     Dates: start: 201402
  3. PREDNISOLON [Suspect]
     Active Substance: PREDNISOLONE
     Dosage: UNK
     Route: 048
     Dates: end: 20140824
  4. HUMALOG [Concomitant]
     Active Substance: INSULIN LISPRO
     Indication: DIABETES MELLITUS
     Dosage: UNK
     Route: 065
     Dates: start: 201406
  5. VOLTAREN [Concomitant]
     Active Substance: DICLOFENAC SODIUM
     Indication: CATARACT
     Dosage: UNK
     Route: 065
     Dates: start: 20140709
  6. CLONIDINE. [Concomitant]
     Active Substance: CLONIDINE
     Indication: CATARACT
     Dosage: EYE DROPS
     Route: 047
     Dates: start: 20140709
  7. ADVAGRAF [Suspect]
     Active Substance: TACROLIMUS
     Indication: LUNG TRANSPLANT
     Dosage: 1 MG, UNK
     Route: 065
     Dates: start: 20140717
  8. PRAVASTATIN [Concomitant]
     Active Substance: PRAVASTATIN\PRAVASTATIN SODIUM
     Indication: LIPID METABOLISM DISORDER
     Dosage: UNK
     Route: 065
  9. ITRACONAZOLE. [Concomitant]
     Active Substance: ITRACONAZOLE
     Indication: PROPHYLAXIS
     Dosage: 100 MG, UNK
     Route: 065
     Dates: start: 20140604
  10. PREDNISOLON [Suspect]
     Active Substance: PREDNISOLONE
     Indication: LUNG TRANSPLANT
     Dosage: 10 MG, QD
     Route: 048
     Dates: start: 201305, end: 20140818
  11. VALCYTE [Concomitant]
     Active Substance: VALGANCICLOVIR HYDROCHLORIDE
     Indication: ANTIVIRAL TREATMENT
     Dosage: 450 MG, UNK
     Route: 065
     Dates: start: 201305
  12. CELLCEPT [Suspect]
     Active Substance: MYCOPHENOLATE MOFETIL\MYCOPHENOLATE MOFETIL HYDROCHLORIDE
     Indication: LUNG TRANSPLANT
     Dosage: 500 MG, UNK
     Route: 065
     Dates: start: 20140703
  13. AMOXICILLIN. [Concomitant]
     Active Substance: AMOXICILLIN
     Indication: INFECTIVE GLOSSITIS
     Dosage: UNK
     Route: 065
     Dates: start: 20140626
  14. COTRIM D.S. [Concomitant]
     Active Substance: SULFAMETHOXAZOLE\TRIMETHOPRIM
     Indication: INFECTION PROPHYLAXIS
     Dosage: UNK
     Route: 065
     Dates: start: 201305
  15. VIGANTOLETTEN [Concomitant]
     Active Substance: CHOLECALCIFEROL
     Indication: OSTEOPOROSIS
     Dosage: UNK
     Route: 065
  16. AZOPT [Concomitant]
     Active Substance: BRINZOLAMIDE
     Indication: CATARACT
     Dosage: EYE DROPS
     Route: 047
  17. DEXAMETHASONE\NEOMYCIN SULFATE\POLYMYXIN B. [Concomitant]
     Active Substance: DEXAMETHASONE\NEOMYCIN SULFATE\POLYMYXIN B
     Indication: CATARACT
     Dosage: EYE DROPS
     Route: 047
     Dates: start: 20140709
  18. NO TREATMENT RECEIVED [Suspect]
     Active Substance: UNSPECIFIED INGREDIENT
     Indication: LUNG TRANSPLANT
     Dosage: NO TREATMENT
     Route: 065
  19. PANTOZOL [Concomitant]
     Active Substance: PANTOPRAZOLE SODIUM
     Indication: GASTRITIS PROPHYLAXIS
     Dosage: 40 MG, UNK
     Route: 065
     Dates: start: 201305
  20. IVABRADINE [Concomitant]
     Active Substance: IVABRADINE
     Indication: TACHYCARDIA
     Dosage: 5 MG, UNK
     Route: 065
     Dates: start: 201305

REACTIONS (1)
  - Lung transplant rejection [Recovering/Resolving]

NARRATIVE: CASE EVENT DATE: 20140819
